FAERS Safety Report 9257556 (Version 4)
Quarter: 2013Q2

REPORT INFORMATION
  Report Type: Spontaneous
  Country: JP (occurrence: JP)
  Receive Date: 20130426
  Receipt Date: 20130529
  Transmission Date: 20140414
  Serious: Yes (Death, Hospitalization)
  Sender: FDA-Public Use
  Company Number: JP-MILLENNIUM PHARMACEUTICALS, INC.-2013-02983

PATIENT
  Sex: 0

DRUGS (16)
  1. VELCADE [Suspect]
     Indication: PLASMA CELL MYELOMA
     Dosage: 1.3 MG/M2, UNK
     Route: 058
     Dates: start: 20130401, end: 20130411
  2. LY2127399 [Suspect]
     Indication: PLASMA CELL MYELOMA
     Dosage: 300 MG, UNK
     Route: 042
     Dates: start: 20130401, end: 20130401
  3. DEXAMETHASONE [Suspect]
     Indication: PLASMA CELL MYELOMA
     Dosage: 20 MG, UNK
     Route: 048
     Dates: start: 20130401, end: 20130412
  4. RISPERDAL [Suspect]
     Indication: INSOMNIA
     Dosage: 0.3 MG, UNK
     Route: 048
  5. TAKEPRON [Concomitant]
     Indication: PROPHYLAXIS AGAINST GASTROINTESTINAL ULCER
     Dosage: 15 MG, UNK
     Route: 048
  6. ZOVIRAX                            /00587301/ [Concomitant]
     Indication: PROPHYLAXIS
     Dosage: 200 MG, UNK
     Route: 048
  7. DIFLUCAN [Concomitant]
     Indication: INFECTION PROPHYLAXIS
     Dosage: 100 MG, UNK
     Route: 048
  8. BAKTAR [Concomitant]
     Indication: PROPHYLAXIS
     Dosage: UNK
     Route: 048
  9. METHYCOBAL                         /00324901/ [Concomitant]
     Indication: NEUROPATHY PERIPHERAL
     Dosage: UNK
     Route: 048
  10. XYZAL [Concomitant]
     Dosage: 5 MG, UNK
     Route: 048
  11. AMLODIN [Concomitant]
     Indication: HYPERTENSION
     Dosage: 5 MG, UNK
     Route: 048
  12. FENTANYL CITRATE [Concomitant]
     Indication: BACK PAIN
     Dosage: 2 MG, UNK
     Route: 062
  13. OXYNORM [Concomitant]
     Indication: BACK PAIN
     Dosage: 2 MG, UNK
     Route: 048
  14. PANTOSIN [Concomitant]
     Indication: CONSTIPATION
     Dosage: 1000 MG, UNK
     Route: 048
  15. LENDORMIN [Concomitant]
     Indication: INSOMNIA
     Dosage: 0.125 UNK, UNK
     Route: 048
  16. SODIUM CHLORIDE [Concomitant]
     Indication: DECREASED APPETITE
     Dosage: UNK
     Route: 042
     Dates: start: 20130418

REACTIONS (3)
  - Plasma cell myeloma [Fatal]
  - Nerve compression [Unknown]
  - Off label use [Unknown]
